FAERS Safety Report 8469487-1 (Version None)
Quarter: 2012Q2

REPORT INFORMATION
  Report Type: 
  Country: None (occurrence: None)
  Receive Date: 20120626
  Receipt Date: 20120611
  Transmission Date: 20120825
  Serious: Yes (Disabling, Other)
  Sender: FDA-Public Use
  Company Number: CHPA2012US012669

PATIENT
  Age: 74 Year
  Sex: Female

DRUGS (4)
  1. ASPIRIN [Concomitant]
     Indication: ANTICOAGULANT THERAPY
     Dosage: 81 MG, UNK
  2. EXCEDRIN EXTRA STRENGTH TABLETS [Suspect]
     Indication: ANTICOAGULANT THERAPY
     Dosage: UNK, INFREQUENT USE
     Route: 048
  3. EXCEDRIN EXTRA STRENGTH TABLETS [Suspect]
     Dosage: 1 TO 3 DF, QD
     Route: 048
     Dates: start: 19940101
  4. DRUG THERAPY NOS [Concomitant]
     Dosage: UNK, UNK

REACTIONS (11)
  - LIMB CRUSHING INJURY [None]
  - DIZZINESS [None]
  - WHEELCHAIR USER [None]
  - HEAD INJURY [None]
  - INCORRECT DRUG ADMINISTRATION DURATION [None]
  - BEDRIDDEN [None]
  - ROAD TRAFFIC ACCIDENT [None]
  - OFF LABEL USE [None]
  - UNDERDOSE [None]
  - OPEN WOUND [None]
  - CONCUSSION [None]
